FAERS Safety Report 21530180 (Version 1)
Quarter: 2022Q4

REPORT INFORMATION
  Report Type: Spontaneous
  Country: US (occurrence: None)
  Receive Date: 20221028
  Receipt Date: 20221028
  Transmission Date: 20230113
  Serious: Yes (Life-Threatening, Hospitalization)
  Sender: FDA-Public Use
  Company Number: None

PATIENT

DRUGS (1)
  1. XARELTO [Suspect]
     Active Substance: RIVAROXABAN

REACTIONS (4)
  - Subarachnoid haemorrhage [None]
  - Aneurysm [None]
  - Mobility decreased [None]
  - Aphasia [None]

NARRATIVE: CASE EVENT DATE: 20210819
